FAERS Safety Report 7372766-2 (Version None)
Quarter: 2011Q1

REPORT INFORMATION
  Report Type: 
  Country: None (occurrence: None)
  Receive Date: 20110315
  Receipt Date: 20110131
  Transmission Date: 20110831
  Serious: Yes (Hospitalization, Other)
  Sender: FDA-Public Use
  Company Number: 018472

PATIENT
  Sex: Female

DRUGS (18)
  1. HEPARIN [Concomitant]
  2. ALENDRONATE SODIUM [Concomitant]
  3. FAMOTIDINE [Concomitant]
  4. SALAZOSULFAPYRIDINE [Concomitant]
  5. FEXOFENADINE HCL [Concomitant]
  6. CERTOLIZUMAB PEGOL (CERTOLIZUMAB PEGOL) [Suspect]
     Indication: RHEUMATOID ARTHRITIS
     Dosage: 400 MG 1X2 WEEKS, RA0006:WEEKS 0 TO 4,200MG1X2W,RA0006:W 6TO22,400MG1X4W, SUBCUTANEOUS
     Route: 058
     Dates: start: 20090723, end: 20090101
  7. CERTOLIZUMAB PEGOL (CERTOLIZUMAB PEGOL) [Suspect]
     Indication: RHEUMATOID ARTHRITIS
     Dosage: 400 MG 1X2 WEEKS, RA0006:WEEKS 0 TO 4,200MG1X2W,RA0006:W 6TO22,400MG1X4W, SUBCUTANEOUS
     Route: 058
     Dates: start: 20100101, end: 20100121
  8. CERTOLIZUMAB PEGOL (CERTOLIZUMAB PEGOL) [Suspect]
     Indication: RHEUMATOID ARTHRITIS
     Dosage: 400 MG 1X2 WEEKS, RA0006:WEEKS 0 TO 4,200MG1X2W,RA0006:W 6TO22,400MG1X4W, SUBCUTANEOUS
     Route: 058
     Dates: start: 20100204, end: 20100819
  9. DEXAMETHASONE DIPROPIONATE [Concomitant]
  10. AROTINOLOL HYDROCHLORIDE [Concomitant]
  11. ELCATONIN [Concomitant]
  12. CANDESARTAN CILEXETIL [Concomitant]
  13. BETAMETHASONE VALERATE [Concomitant]
  14. PREDNISOLONE [Concomitant]
  15. REBAMIPIDE [Concomitant]
  16. DICLOFENAC SODIUM [Concomitant]
  17. LEVOMENTHOL [Concomitant]
  18. INDOMETHACIN SODIUM [Concomitant]

REACTIONS (3)
  - NON-HODGKIN'S LYMPHOMA [None]
  - DIFFUSE LARGE B-CELL LYMPHOMA [None]
  - GASTRIC ULCER HAEMORRHAGE [None]
